FAERS Safety Report 6534281-5 (Version None)
Quarter: 2010Q1

REPORT INFORMATION
  Report Type: 
  Country: None (occurrence: None)
  Receive Date: 20100112
  Receipt Date: 20100104
  Transmission Date: 20100710
  Serious: Yes (Hospitalization)
  Sender: FDA-Public Use
  Company Number: GB-SANOFI-AVENTIS-A01200908571

PATIENT
  Sex: Female

DRUGS (8)
  1. HYDROXYCHLOROQUINE SULFATE [Suspect]
     Indication: DRUG USE FOR UNKNOWN INDICATION
     Route: 065
     Dates: end: 20090404
  2. HYDROXYCHLOROQUINE SULFATE [Suspect]
     Route: 065
     Dates: start: 20090404, end: 20090418
  3. PRAVASTATIN [Concomitant]
     Route: 065
     Dates: start: 20050101
  4. LOFEPRAMINE [Concomitant]
     Indication: ANTIDEPRESSANT THERAPY
     Route: 065
     Dates: start: 19890101
  5. PARACETAMOL [Concomitant]
     Indication: DRUG USE FOR UNKNOWN INDICATION
     Route: 048
     Dates: start: 20080101
  6. NITROGLYCERIN [Concomitant]
     Indication: DRUG USE FOR UNKNOWN INDICATION
     Route: 048
     Dates: start: 20030101
  7. LITHIUM CARBONATE [Concomitant]
     Indication: DRUG USE FOR UNKNOWN INDICATION
     Route: 048
     Dates: start: 19960101, end: 20090403
  8. LITHIUM CARBONATE [Concomitant]
     Route: 048

REACTIONS (3)
  - DEPRESSION [None]
  - MEDICATION ERROR [None]
  - MOOD ALTERED [None]
